FAERS Safety Report 9947110 (Version 1)
Quarter: 2014Q1

REPORT INFORMATION
  Report Type: Report from Study
  Country: US (occurrence: US)
  Receive Date: 20140303
  Receipt Date: 20140303
  Transmission Date: 20141002
  Serious: No
  Sender: FDA-Public Use
  Company Number: US-ABBVIE-13P-163-1064608-00

PATIENT
  Age: 55 Year
  Sex: Female

DRUGS (3)
  1. HUMIRA [Suspect]
     Indication: CROHN^S DISEASE
     Dosage: 160MG DAY 1, 80MG DAY 14, 40MG EVERY OTHER WEEK
     Route: 058
     Dates: start: 20120918, end: 20120918
  2. HUMIRA [Suspect]
     Dosage: 160MG DAY 1, 80MG DAY 14, 40MG EVERY OTHER WEEK
     Route: 058
  3. HUMIRA [Suspect]
     Dosage: 160MG DAY 1, 80MG DAY 14, 40MG EVERY OTHER WEEK
     Route: 058

REACTIONS (1)
  - Drug ineffective [Unknown]
